FAERS Safety Report 10005052 (Version 2)
Quarter: 2014Q1

REPORT INFORMATION
  Report Type: Spontaneous
  Country: US (occurrence: US)
  Receive Date: 20140312
  Receipt Date: 20140312
  Transmission Date: 20141002
  Serious: No
  Sender: FDA-Public Use
  Company Number: US-GILEAD-2013-0067491

PATIENT
  Sex: Female
  Weight: 66.21 kg

DRUGS (11)
  1. LETAIRIS [Suspect]
     Indication: PULMONARY HYPERTENSION
     Dosage: 10 MG, QD
     Route: 048
     Dates: start: 20120423
  2. LETAIRIS [Suspect]
     Indication: SCLERODERMA
  3. VENTAVIS [Concomitant]
  4. ADCIRCA [Concomitant]
  5. AMLODIPINE BESYLATE [Concomitant]
  6. OMEPRAZOLE [Concomitant]
  7. LISINOPRIL [Concomitant]
  8. TRAMADOL [Concomitant]
  9. ACETAMINOPHEN [Concomitant]
  10. HYDROCHLOROTHIAZIDE [Concomitant]
  11. CLOBETASOL PROPIONATE [Concomitant]

REACTIONS (3)
  - Visual impairment [Unknown]
  - Blood pressure decreased [Unknown]
  - Headache [Unknown]
